FAERS Safety Report 9836662 (Version 1)
Quarter: 2013Q4

REPORT INFORMATION
  Report Type: Spontaneous
  Country: US (occurrence: None)
  Receive Date: 20131120
  Receipt Date: 20131120
  Transmission Date: 20140711
  Serious: No
  Sender: FDA-Public Use
  Company Number: 1000049313

PATIENT
  Age: 65 Year
  Sex: Female

DRUGS (6)
  1. VIIBRYD (VILAZODONE HYDROCHLORIDE) [Suspect]
     Indication: ANXIETY
     Dosage: 10 MG, 1 IN1 D
     Route: 048
     Dates: start: 20130918, end: 20130924
  2. VIIBRYD (VILAZODONE HYDROCHLORIDE) [Suspect]
     Indication: DISTURBANCE IN ATTENTION
     Dosage: 10 MG, 1 IN1 D
     Route: 048
     Dates: start: 20130918, end: 20130924
  3. LEXAPRO (ESCITALOPRAM OXALATE) TABLETS [Suspect]
     Indication: ANXIETY
     Dosage: 10 MG, 1 IN 1 D
     Route: 048
     Dates: start: 2003, end: 200309
  4. LEXAPRO (ESCITALOPRAM OXALATE) TABLETS [Suspect]
     Indication: DISTURBANCE IN ATTENTION
     Dosage: 10 MG, 1 IN 1 D
     Route: 048
     Dates: start: 2003, end: 200309
  5. CRESTOR [Concomitant]
  6. VITAMIN D [Concomitant]

REACTIONS (1)
  - Muscle twitching [None]
